FAERS Safety Report 7512864-3 (Version None)
Quarter: 2011Q2

REPORT INFORMATION
  Report Type: 
  Country: None (occurrence: None)
  Receive Date: 20110520
  Receipt Date: 20110511
  Transmission Date: 20111010
  Serious: Yes (Death)
  Sender: FDA-Public Use
  Company Number: JPI-P-014792

PATIENT
  Age: 76 Year
  Sex: Female

DRUGS (4)
  1. XYREM [Suspect]
     Indication: CATAPLEXY
     Dosage: SEE IMAGE: ORAL
     Route: 048
     Dates: start: 20050401, end: 20051005
  2. XYREM [Suspect]
     Indication: CATAPLEXY
     Dosage: SEE IMAGE: ORAL
     Route: 048
     Dates: start: 20050209, end: 20050101
  3. XYREM [Suspect]
     Indication: CATAPLEXY
     Dosage: SEE IMAGE: ORAL
     Route: 048
     Dates: start: 20041122
  4. XYREM [Suspect]
     Indication: CATAPLEXY
     Dosage: SEE IMAGE: ORAL
     Route: 048
     Dates: start: 20040907, end: 20040101

REACTIONS (2)
  - METASTATIC NEOPLASM [None]
  - THYROID CANCER METASTATIC [None]
